FAERS Safety Report 26011948 (Version 1)
Quarter: 2025Q4

REPORT INFORMATION
  Report Type: Spontaneous
  Country: US (occurrence: US)
  Receive Date: 20251107
  Receipt Date: 20251107
  Transmission Date: 20260117
  Serious: No
  Sender: TEVA
  Company Number: US-TEVA-VS-3389830

PATIENT
  Age: 38 Year
  Sex: Female

DRUGS (1)
  1. AJOVY [Suspect]
     Active Substance: FREMANEZUMAB-VFRM
     Indication: Product used for unknown indication
     Dosage: INJECTION (AUTOINJECTOR), STRENGTH: 225 MG / 1.5 ML
     Route: 065

REACTIONS (2)
  - Injection site pain [Unknown]
  - Accidental exposure to product [Unknown]
